FAERS Safety Report 18737494 (Version 1)
Quarter: 2021Q1

REPORT INFORMATION
  Report Type: Spontaneous
  Country: CN (occurrence: CN)
  Receive Date: 20210113
  Receipt Date: 20210113
  Transmission Date: 20210419
  Serious: Yes (Hospitalization, Other)
  Sender: FDA-Public Use
  Company Number: CN-PFIZER INC-2021015611

PATIENT
  Age: 66 Year
  Sex: Female
  Weight: 60 kg

DRUGS (2)
  1. XALKORI [Suspect]
     Active Substance: CRIZOTINIB
     Indication: SYMPTOMATIC TREATMENT
     Dosage: 1 DF, 1X/DAY
     Route: 041
     Dates: start: 20201010, end: 20201214
  2. TAGRISSO [Concomitant]
     Active Substance: OSIMERTINIB
     Indication: SYMPTOMATIC TREATMENT
     Dosage: 1 DF, 1X/DAY
     Route: 048
     Dates: start: 20201010, end: 20201214

REACTIONS (5)
  - Platelet count decreased [Recovering/Resolving]
  - Upper gastrointestinal haemorrhage [Recovering/Resolving]
  - Abnormal faeces [Recovering/Resolving]
  - Haemoglobin decreased [Recovering/Resolving]
  - Diarrhoea [Recovering/Resolving]

NARRATIVE: CASE EVENT DATE: 20201123
